FAERS Safety Report 4653976-1 (Version None)
Quarter: 2005Q2

REPORT INFORMATION
  Report Type: 
  Country: None (occurrence: None)
  Receive Date: 20050404
  Receipt Date: 20041202
  Transmission Date: 20051028
  Serious: No
  Sender: FDA-Public Use
  Company Number: USA041285096

PATIENT
  Age: 55 Year
  Sex: Female
  Weight: 70 kg

DRUGS (2)
  1. CYMBALTA [Suspect]
     Dosage: 60 MG DAY
     Dates: start: 20041128
  2. ZOLOFT [Concomitant]

REACTIONS (3)
  - BLOOD SODIUM DECREASED [None]
  - NAUSEA [None]
  - VOMITING [None]
